FAERS Safety Report 13655779 (Version 1)
Quarter: 2017Q2

REPORT INFORMATION
  Report Type: Spontaneous
  Country: US (occurrence: US)
  Receive Date: 20170615
  Receipt Date: 20170615
  Transmission Date: 20170830
  Serious: No
  Sender: FDA-Public Use
  Company Number: US-GLAXOSMITHKLINE-US2017086694

PATIENT
  Sex: Male

DRUGS (2)
  1. LAMISIL AT CONTINUOUS SPRAY [Suspect]
     Active Substance: TERBINAFINE HYDROCHLORIDE
     Indication: TINEA PEDIS
     Dosage: UNK
     Dates: start: 201705, end: 20170601
  2. LAMISIL AT CONTINUOUS SPRAY [Suspect]
     Active Substance: TERBINAFINE HYDROCHLORIDE
     Indication: BURNING SENSATION

REACTIONS (4)
  - Condition aggravated [Recovering/Resolving]
  - Skin irritation [Recovering/Resolving]
  - Burning sensation [Recovering/Resolving]
  - Expired product administered [Unknown]
